FAERS Safety Report 10363510 (Version 4)
Quarter: 2015Q2

REPORT INFORMATION
  Report Type: Spontaneous
  Country: US (occurrence: US)
  Receive Date: 20140805
  Receipt Date: 20150416
  Transmission Date: 20150821
  Serious: Yes (Hospitalization)
  Sender: FDA-Public Use
  Company Number: US-BAYER-2014-114705

PATIENT
  Age: 44 Year
  Sex: Female
  Weight: 83 kg

DRUGS (2)
  1. PITOCIN [Concomitant]
     Active Substance: OXYTOCIN
  2. MIRENA [Suspect]
     Active Substance: LEVONORGESTREL
     Indication: CONTRACEPTION
     Dosage: 20 MCG/24HR, CONT
     Route: 015
     Dates: start: 20061004, end: 20120717

REACTIONS (11)
  - Embedded device [None]
  - Emotional distress [None]
  - Device misuse [None]
  - Psychological trauma [None]
  - Injury [None]
  - Uterine leiomyoma [None]
  - Device dislocation [None]
  - Pain [None]
  - Depression [None]
  - Anxiety [None]
  - Vein disorder [None]

NARRATIVE: CASE EVENT DATE: 20061004
